FAERS Safety Report 7126998-9 (Version None)
Quarter: 2010Q4

REPORT INFORMATION
  Report Type: 
  Country: None (occurrence: None)
  Receive Date: 20101129
  Receipt Date: 20100102
  Transmission Date: 20110411
  Serious: No
  Sender: FDA-Public Use
  Company Number: US-PFIZER INC-2010000452

PATIENT
  Sex: Male
  Weight: 93.4 kg

DRUGS (1)
  1. VIAGRA [Suspect]
     Dates: start: 20100102

REACTIONS (3)
  - ERECTILE DYSFUNCTION [None]
  - MEDICATION ERROR [None]
  - SKIN DISCOLOURATION [None]
